FAERS Safety Report 19959150 (Version 1)
Quarter: 2021Q4

REPORT INFORMATION
  Report Type: Spontaneous
  Country: US (occurrence: US)
  Receive Date: 20211015
  Receipt Date: 20211015
  Transmission Date: 20220303
  Serious: Yes (Other)
  Sender: FDA-Public Use
  Company Number: 2021A767315

PATIENT
  Sex: Male

DRUGS (5)
  1. OLAPARIB [Suspect]
     Active Substance: OLAPARIB
     Indication: Prostate cancer metastatic
     Route: 048
     Dates: start: 202011, end: 202101
  2. DOCETAXEL [Concomitant]
     Active Substance: DOCETAXEL
     Route: 065
     Dates: start: 201710, end: 202011
  3. BICALUTAMIDE/LEUPRORELIN [Concomitant]
     Route: 065
     Dates: end: 2013
  4. LEUPROLIDE+ENZALUTAMIDE [Concomitant]
     Route: 065
     Dates: start: 2013, end: 201710
  5. ABIRATERONE ACETATE/PREDNISOLONE [Concomitant]
     Route: 065

REACTIONS (1)
  - Metastasis [Unknown]
